FAERS Safety Report 6323139-2 (Version None)
Quarter: 2009Q3

REPORT INFORMATION
  Report Type: 
  Country: None (occurrence: None)
  Receive Date: 20090824
  Receipt Date: 20090316
  Transmission Date: 20100115
  Serious: No
  Sender: FDA-Public Use
  Company Number: US-ABBOTT-09P-163-0563331-00

PATIENT
  Sex: Female
  Weight: 102.15 kg

DRUGS (11)
  1. NIASPAN [Suspect]
     Indication: BLOOD CHOLESTEROL INCREASED
     Route: 048
     Dates: start: 20081101, end: 20090211
  2. NIASPAN [Suspect]
     Route: 048
     Dates: start: 20090212, end: 20090305
  3. NIASPAN [Suspect]
     Route: 048
     Dates: start: 20090306, end: 20090317
  4. AMLODIPINE BESYLATE [Concomitant]
     Indication: HYPERTENSION
     Route: 048
  5. BENAZEPRIL HYDROCHLORIDE [Concomitant]
     Indication: HYPERTENSION
     Route: 048
  6. BYSTOLIC [Concomitant]
     Indication: HYPERTENSION
     Route: 048
     Dates: start: 20090306
  7. GLIPIZIDE [Concomitant]
     Indication: TYPE 2 DIABETES MELLITUS
     Route: 048
  8. METFORMIN HCL [Concomitant]
     Indication: TYPE 2 DIABETES MELLITUS
     Route: 048
  9. FISH OIL [Concomitant]
     Indication: BLOOD CHOLESTEROL INCREASED
     Route: 048
  10. CALCIUM [Concomitant]
     Indication: BONE DISORDER
     Route: 048
  11. LIPOFLAVINOIDS [Concomitant]
     Indication: VERTIGO
     Route: 048

REACTIONS (4)
  - ARTHRALGIA [None]
  - HEADACHE [None]
  - MUSCULAR WEAKNESS [None]
  - PAIN IN EXTREMITY [None]
